FAERS Safety Report 18689205 (Version 1)
Quarter: 2020Q4

REPORT INFORMATION
  Report Type: Spontaneous
  Country: US (occurrence: US)
  Receive Date: 20201231
  Receipt Date: 20201231
  Transmission Date: 20210114
  Serious: Yes (Hospitalization, Other)
  Sender: FDA-Public Use
  Company Number: US-ELI_LILLY_AND_COMPANY-US202012011942

PATIENT
  Sex: Female

DRUGS (1)
  1. HUMALOG [Suspect]
     Active Substance: INSULIN LISPRO
     Indication: DIABETES MELLITUS
     Dosage: UNK, UNKNOWN
     Route: 058

REACTIONS (9)
  - Hot flush [Recovered/Resolved]
  - Multiple fractures [Unknown]
  - Rib fracture [Recovered/Resolved]
  - Foot fracture [Recovering/Resolving]
  - Concussion [Recovered/Resolved]
  - Road traffic accident [Recovered/Resolved]
  - Body temperature increased [Recovered/Resolved]
  - Pelvic fracture [Recovered/Resolved]
  - Fall [Recovered/Resolved]
